FAERS Safety Report 9691931 (Version 2)
Quarter: 2013Q4

REPORT INFORMATION
  Report Type: Spontaneous
  Country: JP (occurrence: JP)
  Receive Date: 20131118
  Receipt Date: 20131118
  Transmission Date: 20140711
  Serious: Yes (Other)
  Sender: FDA-Public Use
  Company Number: JP-009507513-1308JPN006734

PATIENT
  Age: 69 Year
  Sex: Female

DRUGS (10)
  1. ENDOXAN [Suspect]
     Dosage: UNK, TOTAL OF 5 COURSES WERE PERFORMED
     Route: 048
     Dates: start: 20070302
  2. ENDOXAN [Suspect]
     Dosage: 100 MG, QD
     Route: 048
     Dates: start: 20130906
  3. GASTER [Concomitant]
     Indication: GASTRITIS
     Dosage: 40 MG, QD
     Route: 048
     Dates: start: 20110527, end: 20130704
  4. KERLONG [Concomitant]
     Indication: HYPERTENSION
     Dosage: 10 MG, QD
     Route: 048
     Dates: start: 2005
  5. NORVASC [Concomitant]
     Indication: HYPERTENSION
     Dosage: 5 MG, QD
     Route: 048
     Dates: start: 2005
  6. TOREMIFENE CITRATE [Suspect]
     Indication: BREAST CANCER STAGE IV
     Dosage: 120 MG, QD
     Route: 048
     Dates: start: 20110527, end: 20130531
  7. TOREMIFENE CITRATE [Suspect]
     Dosage: 40 MG, QD
     Route: 048
     Dates: start: 201106, end: 201306
  8. FURTULON [Suspect]
     Indication: BREAST CANCER STAGE IV
     Dosage: 800 MG, QD
     Route: 048
     Dates: start: 20110527, end: 20130426
  9. FURTULON [Suspect]
     Dosage: 600 MG, QD
     Route: 048
     Dates: start: 20130906
  10. ENDOXAN [Suspect]
     Indication: BREAST CANCER STAGE IV
     Dosage: 100 MG, QD
     Route: 048
     Dates: start: 20110527, end: 20130426

REACTIONS (1)
  - Renal impairment [Recovering/Resolving]
